FAERS Safety Report 6060529-X (Version None)
Quarter: 2009Q1

REPORT INFORMATION
  Report Type: 
  Country: None (occurrence: None)
  Receive Date: 20090202
  Receipt Date: 20090120
  Transmission Date: 20090719
  Serious: Yes (Death, Other)
  Sender: FDA-Public Use
  Company Number: GB-RANBAXY-2009RR-21072

PATIENT
  Age: 80 Year
  Sex: Female

DRUGS (20)
  1. CEFTRIAXONE [Suspect]
     Indication: RESPIRATORY TRACT INFECTION
     Dosage: 2 G, QD
     Route: 042
     Dates: start: 20080925, end: 20080928
  2. CLARITHROMYCIN [Suspect]
     Indication: RESPIRATORY TRACT INFECTION
     Dosage: 500 MG, QD
     Route: 042
     Dates: start: 20080925, end: 20080928
  3. CLARITHROMYCIN [Suspect]
     Dosage: 500 MG, QD
     Route: 048
     Dates: start: 20080929, end: 20081005
  4. CLARITHROMYCIN [Suspect]
     Dosage: 500 MG, QD
     Route: 042
     Dates: start: 20080925, end: 20080928
  5. AMOXICILLIN + CLAVULANATE POTASSIUM [Suspect]
     Indication: RESPIRATORY TRACT INFECTION
     Dosage: 625 MG, TID
     Route: 048
     Dates: start: 20080929, end: 20081005
  6. ADCAL-D3 [Concomitant]
     Dosage: 2 DF, QD
     Route: 048
  7. COMBIVENT [Concomitant]
     Indication: CHRONIC OBSTRUCTIVE PULMONARY DISEASE
     Dosage: 1 DF, QID
     Route: 055
  8. ENOXAPARIN [Concomitant]
     Indication: THROMBOSIS PROPHYLAXIS
     Dosage: 40 MG, QD
     Route: 065
     Dates: start: 20080926, end: 20081010
  9. FUROSEMIDE [Concomitant]
     Indication: CARDIAC FAILURE
     Dosage: 80 MG, QD
     Route: 042
     Dates: start: 20080926, end: 20081001
  10. FUROSEMIDE [Concomitant]
     Dosage: UNK
  11. FUROSEMIDE [Concomitant]
     Dosage: 80 MG, QD
     Route: 048
  12. GLICLAZIDE [Concomitant]
     Indication: DIABETES MELLITUS
     Dosage: 160 MG, BID
     Route: 048
  13. INSULIN [Concomitant]
  14. METFORMIN HCL [Concomitant]
     Indication: DIABETES MELLITUS
     Dosage: 500 MG, QD
     Route: 065
  15. OMEPRAZOLE [Concomitant]
     Dosage: 20 MG, QD
     Route: 048
  16. OXYNORM [Concomitant]
     Dosage: 1 MG, BID
     Route: 048
     Dates: start: 20081009
  17. PREDNISOLONE [Concomitant]
     Indication: CHRONIC OBSTRUCTIVE PULMONARY DISEASE
     Dosage: 40 MG, QD
     Route: 048
     Dates: start: 20080925, end: 20080929
  18. SALBUTAMOL [Concomitant]
     Indication: CHRONIC OBSTRUCTIVE PULMONARY DISEASE
     Dosage: 5 MG, QD
     Route: 055
  19. SERETIDE [Concomitant]
     Indication: CHRONIC OBSTRUCTIVE PULMONARY DISEASE
     Dosage: 2 DF, BID
     Route: 055
  20. TIOTROPIUM BROMIDE [Concomitant]
     Indication: CHRONIC OBSTRUCTIVE PULMONARY DISEASE
     Dosage: 18 UG, QD
     Route: 055

REACTIONS (3)
  - BLOOD CREATININE INCREASED [None]
  - CLOSTRIDIUM DIFFICILE COLITIS [None]
  - RENAL FAILURE ACUTE [None]
